FAERS Safety Report 8196219-7 (Version None)
Quarter: 2012Q1

REPORT INFORMATION
  Report Type: 
  Country: None (occurrence: None)
  Receive Date: 20120306
  Receipt Date: 20120222
  Transmission Date: 20120608
  Serious: Yes (Death, Life-Threatening, Hospitalization)
  Sender: FDA-Public Use
  Company Number: WAES 1202USA00964

PATIENT
  Age: 65 Year
  Sex: Male

DRUGS (13)
  1. MOVIPREP [Concomitant]
  2. TRAMADOL HCL [Concomitant]
  3. HYZAAR [Suspect]
     Indication: HYPERTENSION
     Dosage: 50=125.5 MG
     Route: 048
     Dates: start: 20100901, end: 20110201
  4. LOVENOX [Suspect]
     Dosage: 4000 IU
     Route: 058
     Dates: start: 20111107, end: 20111125
  5. ACETAMINOPHEN [Concomitant]
  6. HYZAAR [Suspect]
     Indication: HYPERTENSION
     Dosage: 100-25 MG/
     Route: 048
     Dates: start: 20110201
  7. TAB HYPERIUM (RILMENIDINE PHOSPHATE) [Suspect]
     Indication: HYPERTENSION
     Dosage: 1 MG
     Dates: start: 20100901
  8. SPASFON-LYOC [Concomitant]
  9. SUNITINIB MALATE [Suspect]
     Indication: RENAL CANCER METASTATIC
     Dosage: 50 MG/DAILY
     Route: 048
     Dates: start: 20101020, end: 20111213
  10. SYMBICORT [Suspect]
     Indication: CHRONIC OBSTRUCTIVE PULMONARY DISEASE
     Route: 055
     Dates: start: 20100901
  11. LANSOPRAZOLE [Suspect]
     Route: 048
     Dates: start: 20100901
  12. AMLODIPINE BESYLATE [Suspect]
     Dosage: 5 MG/DAILY
     Route: 048
     Dates: start: 20101201
  13. POTASSIUM CHLORIDE [Concomitant]

REACTIONS (7)
  - THERAPEUTIC RESPONSE DECREASED [None]
  - INTESTINAL ISCHAEMIA [None]
  - MESENTERIC ARTERY THROMBOSIS [None]
  - AORTIC DISSECTION [None]
  - PNEUMATOSIS [None]
  - DEEP VEIN THROMBOSIS [None]
  - MULTI-ORGAN FAILURE [None]
